FAERS Safety Report 7972937-8 (Version None)
Quarter: 2011Q4

REPORT INFORMATION
  Report Type: 
  Country: None (occurrence: None)
  Receive Date: 20111213
  Receipt Date: 20111208
  Transmission Date: 20120403
  Serious: Yes (Hospitalization, Other)
  Sender: FDA-Public Use
  Company Number: US-ROCHE-783983

PATIENT
  Sex: Male
  Weight: 95.34 kg

DRUGS (6)
  1. ACCUTANE [Suspect]
     Dates: start: 19940201, end: 19940401
  2. ACCUTANE [Suspect]
     Dates: start: 20010201, end: 20010301
  3. ACCUTANE [Suspect]
     Indication: ACNE
     Route: 065
     Dates: start: 19910301, end: 19910401
  4. ACCUTANE [Suspect]
     Route: 065
  5. ACCUTANE [Suspect]
     Route: 065
     Dates: start: 19910901, end: 19911201
  6. ACCUTANE [Suspect]
     Route: 065
     Dates: start: 19930728, end: 19931201

REACTIONS (4)
  - INFLAMMATORY BOWEL DISEASE [None]
  - EPISTAXIS [None]
  - COLITIS ULCERATIVE [None]
  - STRESS [None]
